FAERS Safety Report 12966838 (Version 4)
Quarter: 2017Q2

REPORT INFORMATION
  Report Type: Report from Study
  Country: None (occurrence: US)
  Receive Date: 20161123
  Receipt Date: 20170424
  Transmission Date: 20170830
  Serious: Yes (Hospitalization, Other)
  Sender: FDA-Public Use
  Company Number: US-ABBVIE-16K-163-1785197-00

PATIENT
  Age: 92 Year
  Sex: Male

DRUGS (1)
  1. HUMIRA [Suspect]
     Active Substance: ADALIMUMAB
     Indication: RHEUMATOID ARTHRITIS
     Route: 058
     Dates: start: 201605

REACTIONS (4)
  - Chronic obstructive pulmonary disease [Unknown]
  - Respiratory tract congestion [Not Recovered/Not Resolved]
  - Rotator cuff syndrome [Unknown]
  - Cellulitis [Unknown]

NARRATIVE: CASE EVENT DATE: 20161208
